FAERS Safety Report 24551830 (Version 3)
Quarter: 2024Q4

REPORT INFORMATION
  Report Type: Report from Study
  Country: CZ (occurrence: CZ)
  Receive Date: 20241026
  Receipt Date: 20241126
  Transmission Date: 20250115
  Serious: Yes (Hospitalization)
  Sender: ABBVIE
  Company Number: CZ-ABBVIE-5973766

PATIENT
  Age: 83 Year
  Sex: Male
  Weight: 57 kg

DRUGS (5)
  1. CARBIDOPA\LEVODOPA [Suspect]
     Active Substance: CARBIDOPA\LEVODOPA
     Indication: Parkinson^s disease
     Dosage: MORNING DOSE 9 ML, CONTINUOUS DOSE 4.4 ML/HOUR FROM 6 AM TO 10 PM,??FORM STRENGTH: 20 MILLIGRAM/M...
     Route: 050
     Dates: start: 20231030
  2. CARBIDOPA\LEVODOPA [Suspect]
     Active Substance: CARBIDOPA\LEVODOPA
  3. FOLIC ACID [Concomitant]
     Active Substance: FOLIC ACID
     Indication: Nervous system disorder prophylaxis
     Route: 048
     Dates: start: 20231030
  4. BENSERAZIDE HYDROCHLORIDE\LEVODOPA [Concomitant]
     Active Substance: BENSERAZIDE HYDROCHLORIDE\LEVODOPA
     Indication: Parkinson^s disease
     Dosage: 100/25 MG??1 FOR NIGHT
     Route: 048
  5. VITAMIN B COMPLEX [Concomitant]
     Active Substance: CYANOCOBALAMIN\DEXPANTHENOL\NIACINAMIDE\PYRIDOXINE HYDROCHLORIDE\RIBOFLAVIN 5^-PHOSPHATE SODIUM\THIA
     Indication: Nervous system disorder prophylaxis
     Dates: start: 20231030

REACTIONS (9)
  - Diarrhoea [Recovering/Resolving]
  - Confusional state [Unknown]
  - Hallucination [Unknown]
  - Condition aggravated [Recovering/Resolving]
  - Tongue disorder [Unknown]
  - Decreased appetite [Unknown]
  - Asthenia [Unknown]
  - Screaming [Unknown]
  - Weight decreased [Unknown]
